FAERS Safety Report 6092546-8 (Version None)
Quarter: 2009Q1

REPORT INFORMATION
  Report Type: 
  Country: None (occurrence: None)
  Receive Date: 20090225
  Receipt Date: 20090218
  Transmission Date: 20090719
  Serious: Yes (Hospitalization)
  Sender: FDA-Public Use
  Company Number: BR-ELI_LILLY_AND_COMPANY-BR200902004519

PATIENT
  Sex: Male
  Weight: 70 kg

DRUGS (2)
  1. CIALIS [Suspect]
     Indication: ERECTILE DYSFUNCTION
     Dosage: UNK, UNKNOWN
     Route: 065
     Dates: start: 20081101
  2. LIPITOR [Concomitant]
     Dosage: UNK, UNKNOWN
     Route: 065

REACTIONS (7)
  - COLD SWEAT [None]
  - COMA [None]
  - DISEASE COMPLICATION [None]
  - DRUG INEFFECTIVE [None]
  - EXPIRED DRUG ADMINISTERED [None]
  - LOSS OF CONSCIOUSNESS [None]
  - TREMOR [None]
